FAERS Safety Report 5047900-X (Version None)
Quarter: 2006Q3

REPORT INFORMATION
  Report Type: 
  Country: None (occurrence: None)
  Receive Date: 20060711
  Receipt Date: 20060705
  Transmission Date: 20061208
  Serious: Yes (Hospitalization)
  Sender: FDA-Public Use
  Company Number: US-GLAXOSMITHKLINE-A0611483A

PATIENT
  Age: 10 Year
  Sex: Female

DRUGS (1)
  1. LAMICTAL [Suspect]
     Indication: EPILEPSY
     Route: 048
     Dates: start: 19950101

REACTIONS (4)
  - DRY EYE [None]
  - MADAROSIS [None]
  - SCAR [None]
  - STEVENS-JOHNSON SYNDROME [None]
